FAERS Safety Report 20077416 (Version 1)
Quarter: 2021Q4

REPORT INFORMATION
  Report Type: Spontaneous
  Country: GB (occurrence: GB)
  Receive Date: 20211116
  Receipt Date: 20211116
  Transmission Date: 20220303
  Serious: Yes (Other)
  Sender: FDA-Public Use
  Company Number: GB-INSUD PHARMA-2111GB02653

PATIENT

DRUGS (8)
  1. LANSOPRAZOLE [Suspect]
     Active Substance: LANSOPRAZOLE
     Indication: Dyspepsia
     Dosage: 15 MG, UNKNOWN
     Route: 065
  2. NITISINONE [Suspect]
     Active Substance: NITISINONE
     Indication: Alkaptonuria
     Dosage: 2 MG ALTERNATE DAYS
     Route: 065
  3. NITISINONE [Suspect]
     Active Substance: NITISINONE
     Dosage: 2 MG DAILY
     Route: 065
  4. ACETAMINOPHEN [Concomitant]
     Active Substance: ACETAMINOPHEN
     Dosage: 500 MG WHEN NEEDED
  5. IBUPROFEN [Concomitant]
     Active Substance: IBUPROFEN
     Dosage: 300 MG WHEN NEEDED
  6. LIDOCAINE [Concomitant]
     Active Substance: LIDOCAINE
     Dosage: 5% PATCH
     Route: 062
  7. MORPHINE [Concomitant]
     Active Substance: MORPHINE
     Dosage: 30 MG LIQUID
     Route: 048
  8. THYROXINE [Concomitant]
     Active Substance: LEVOTHYROXINE

REACTIONS (2)
  - Vitiligo [Not Recovered/Not Resolved]
  - Pruritus [Unknown]
